FAERS Safety Report 21986803 (Version 1)
Quarter: 2023Q1

REPORT INFORMATION
  Report Type: Spontaneous
  Country: US (occurrence: US)
  Receive Date: 20230213
  Receipt Date: 20230213
  Transmission Date: 20230417
  Serious: No
  Sender: FDA-Public Use
  Company Number: US-TAKEDA-2023TUS015596

PATIENT
  Sex: Male
  Weight: 130 kg

DRUGS (6)
  1. FIRAZYR [Suspect]
     Active Substance: ICATIBANT ACETATE
     Indication: Angioedema
     Dosage: 30 MILLIGRAM
     Route: 058
     Dates: start: 20230125
  2. FIRAZYR [Suspect]
     Active Substance: ICATIBANT ACETATE
     Indication: Angioedema
     Dosage: 30 MILLIGRAM
     Route: 058
     Dates: start: 20230125
  3. FIRAZYR [Suspect]
     Active Substance: ICATIBANT ACETATE
     Indication: Prophylaxis
     Dosage: 30 MILLIGRAM, Q8HR
     Route: 065
     Dates: start: 20230209
  4. FIRAZYR [Suspect]
     Active Substance: ICATIBANT ACETATE
     Indication: Prophylaxis
     Dosage: 30 MILLIGRAM, Q8HR
     Route: 065
     Dates: start: 20230209
  5. FIRAZYR [Suspect]
     Active Substance: ICATIBANT ACETATE
     Dosage: 30 MILLIGRAM, Q8HR
     Route: 065
     Dates: start: 20230210
  6. FIRAZYR [Suspect]
     Active Substance: ICATIBANT ACETATE
     Dosage: 30 MILLIGRAM, Q8HR
     Route: 065
     Dates: start: 20230210

REACTIONS (2)
  - Drug ineffective [Unknown]
  - Extra dose administered [Unknown]

NARRATIVE: CASE EVENT DATE: 20230125
